FAERS Safety Report 11241262 (Version 2)
Quarter: 2015Q3

REPORT INFORMATION
  Report Type: Report from Study
  Country: JP (occurrence: JP)
  Receive Date: 20150706
  Receipt Date: 20150730
  Transmission Date: 20151125
  Serious: Yes (Death)
  Sender: FDA-Public Use
  Company Number: JP-MERCK-1507JPN002358

PATIENT
  Age: 69 Year
  Sex: Female
  Weight: 52.2 kg

DRUGS (5)
  1. GLACTIV [Suspect]
     Active Substance: SITAGLIPTIN
     Indication: TYPE 2 DIABETES MELLITUS
     Dosage: 50 MG, QD, AFTER BREAKFAST
     Route: 048
     Dates: start: 20111221, end: 20111228
  2. LIVALO [Concomitant]
     Active Substance: PITAVASTATIN CALCIUM
  3. BAYASPIRIN [Concomitant]
     Active Substance: ASPIRIN
  4. HUMALOG [Concomitant]
     Active Substance: INSULIN LISPRO
  5. AMARYL [Concomitant]
     Active Substance: GLIMEPIRIDE

REACTIONS (1)
  - Death [Fatal]

NARRATIVE: CASE EVENT DATE: 20111229
